FAERS Safety Report 20496877 (Version 3)
Quarter: 2022Q2

REPORT INFORMATION
  Report Type: Spontaneous
  Country: US (occurrence: US)
  Receive Date: 20220221
  Receipt Date: 20220406
  Transmission Date: 20220720
  Serious: Yes (Other)
  Sender: FDA-Public Use
  Company Number: US-SA-2022SA051652

PATIENT
  Sex: Female

DRUGS (1)
  1. DUPIXENT [Suspect]
     Active Substance: DUPILUMAB
     Indication: Psoriasis
     Dosage: 300 MG, QOW
     Route: 058
     Dates: start: 202201

REACTIONS (10)
  - Ulcer [Unknown]
  - Renal disorder [Unknown]
  - Peripheral vascular disorder [Unknown]
  - Neuropathy peripheral [Unknown]
  - Pemphigoid [Unknown]
  - Intertrigo [Unknown]
  - Diabetes mellitus [Unknown]
  - Hypertension [Unknown]
  - Oedema peripheral [Unknown]
  - Product use in unapproved indication [Unknown]
